FAERS Safety Report 10333355 (Version 1)
Quarter: 2014Q3

REPORT INFORMATION
  Report Type: Spontaneous
  Country: US (occurrence: US)
  Receive Date: 20140722
  Receipt Date: 20140722
  Transmission Date: 20150326
  Serious: No
  Sender: FDA-Public Use
  Company Number: US-SA-2014SA060496

PATIENT
  Sex: Male

DRUGS (6)
  1. AMBIEN [Suspect]
     Active Substance: ZOLPIDEM TARTRATE
     Indication: SLEEP DISORDER
     Route: 048
  2. TRAZODONE [Concomitant]
     Active Substance: TRAZODONE HYDROCHLORIDE
  3. ROZEREM [Concomitant]
     Active Substance: RAMELTEON
  4. LIPITOR [Concomitant]
     Active Substance: ATORVASTATIN CALCIUM
  5. ANTIHYPERTENSIVES [Concomitant]
     Active Substance: UNSPECIFIED INGREDIENT
     Indication: BLOOD PRESSURE
  6. LUNESTA [Concomitant]
     Active Substance: ESZOPICLONE
     Indication: ANXIETY
     Dosage: LUNESTA FOR ANXIETY IN THE AFTERNOON,
     Route: 065

REACTIONS (4)
  - Sleep disorder [Unknown]
  - Extra dose administered [Unknown]
  - Feeling abnormal [Unknown]
  - Back pain [Unknown]
